FAERS Safety Report 10935701 (Version 3)
Quarter: 2015Q2

REPORT INFORMATION
  Report Type: Spontaneous
  Country: US (occurrence: US)
  Receive Date: 20150320
  Receipt Date: 20150522
  Transmission Date: 20150821
  Serious: Yes (Death, Hospitalization)
  Sender: FDA-Public Use
  Company Number: US-JNJFOC-20150310107

PATIENT
  Age: 80 Year
  Sex: Male
  Weight: 103.42 kg

DRUGS (4)
  1. XARELTO [Suspect]
     Active Substance: RIVAROXABAN
     Indication: CEREBROVASCULAR ACCIDENT PROPHYLAXIS
     Route: 048
     Dates: start: 20131008, end: 20150211
  2. VITAMIN D3 [Concomitant]
     Active Substance: CHOLECALCIFEROL
     Route: 065
  3. CENTRUM SILVER [Concomitant]
     Active Substance: VITAMINS
     Route: 065
  4. XARELTO [Suspect]
     Active Substance: RIVAROXABAN
     Indication: ATRIAL FIBRILLATION
     Route: 048
     Dates: start: 20131008, end: 20150211

REACTIONS (2)
  - Cerebral haemorrhage [Fatal]
  - Malignant hypertension [Unknown]

NARRATIVE: CASE EVENT DATE: 20150211
